FAERS Safety Report 5302242-X (Version None)
Quarter: 2007Q2

REPORT INFORMATION
  Report Type: 
  Country: None (occurrence: None)
  Receive Date: 20070419
  Receipt Date: 20060926
  Transmission Date: 20071010
  Serious: Yes (Hospitalization)
  Sender: FDA-Public Use
  Company Number: US-GLAXOSMITHKLINE-A0618622A

PATIENT
  Age: 44 Year
  Sex: Female

DRUGS (5)
  1. LITHIUM CARBONATE [Suspect]
     Indication: DRUG USE FOR UNKNOWN INDICATION
     Route: 065
  2. LAMICTAL [Suspect]
     Indication: BIPOLAR DISORDER
     Dosage: 200MG PER DAY
     Route: 048
     Dates: start: 20050101, end: 20060808
  3. SEROQUEL [Concomitant]
  4. KLONOPIN [Concomitant]
     Dosage: 1MG TWICE PER DAY
  5. LOTREL [Concomitant]
     Indication: HYPERTENSION
     Dosage: 1TAB PER DAY

REACTIONS (2)
  - MANIA [None]
  - RENAL FAILURE CHRONIC [None]
